FAERS Safety Report 12248961 (Version 1)
Quarter: 2016Q2

REPORT INFORMATION
  Report Type: Report from Study
  Country: US (occurrence: US)
  Receive Date: 20160408
  Receipt Date: 20160408
  Transmission Date: 20160815
  Serious: Yes (Other)
  Sender: FDA-Public Use
  Company Number: ADR-2014-01061

PATIENT
  Age: 51 Year
  Sex: Male

DRUGS (8)
  1. CLONIDINE. [Suspect]
     Active Substance: CLONIDINE
     Dosage: 182.95MCG/DAY
     Route: 037
  2. CLONIDINE. [Suspect]
     Active Substance: CLONIDINE
     Dosage: 32.19MCG/DAY
     Route: 037
  3. MORPHINE [Suspect]
     Active Substance: MORPHINE
     Dosage: 1.321MG/DAY
     Route: 037
  4. COMPOUNDED BACLOFEN [Suspect]
     Active Substance: BACLOFEN
     Dosage: 112.27MCG/DAY
     Route: 037
  5. BUPIVACAINE. [Suspect]
     Active Substance: BUPIVACAINE
     Dosage: 0.6604MG/DAY
     Route: 037
  6. MORPHINE [Suspect]
     Active Substance: MORPHINE
     Dosage: 7.507MG/DAY
     Route: 037
  7. COMPOUNDED BACLOFEN [Suspect]
     Active Substance: BACLOFEN
     Dosage: 638.10MCG/DAY
     Route: 037
  8. BUPIVACAINE. [Suspect]
     Active Substance: BUPIVACAINE
     Dosage: 3.7535MG/DAY
     Route: 037

REACTIONS (8)
  - Somnolence [None]
  - Drug withdrawal syndrome [None]
  - Hyperhidrosis [None]
  - Nausea [None]
  - Pain [None]
  - Therapeutic response decreased [None]
  - Vomiting [None]
  - Adverse drug reaction [None]
